FAERS Safety Report 15060696 (Version 1)
Quarter: 2018Q2

REPORT INFORMATION
  Report Type: Spontaneous
  Country: GB (occurrence: GB)
  Receive Date: 20180625
  Receipt Date: 20180625
  Transmission Date: 20180711
  Serious: Yes (Other)
  Sender: FDA-Public Use
  Company Number: GB-PFIZER INC-2018251845

PATIENT
  Age: 87 Year
  Sex: Female
  Weight: 71 kg

DRUGS (18)
  1. AVAMYS [Concomitant]
     Active Substance: FLUTICASONE FUROATE
     Dosage: 1 DF, 1X/DAY
     Dates: start: 20170320
  2. DOXYCYCLINE. [Concomitant]
     Active Substance: DOXYCYCLINE
     Dosage: 1 DF ONCE DAILY (2 ON FIRST DOSE)
     Dates: start: 20180425, end: 20180425
  3. HYDROMOL /00906601/ [Concomitant]
     Dosage: 1 DF APPLIED TWICE A DAY AS A SKIN MOISTURISER AS NEEDED
     Dates: start: 20170419
  4. AMITRIPTYLINE HYDROCHLORIDE. [Concomitant]
     Active Substance: AMITRIPTYLINE HYDROCHLORIDE
     Dosage: 1 DF ONCE DAILY AT NIGHT
     Dates: start: 20130924, end: 20180515
  5. CALCICHEW D3 [Concomitant]
     Active Substance: CALCIUM\CHOLECALCIFEROL
     Dosage: 2 DF, 1X/DAY
     Dates: start: 20161114
  6. SPIRIVA [Concomitant]
     Active Substance: TIOTROPIUM BROMIDE MONOHYDRATE
     Dosage: 2 DF (PUFFS) ONCE DAILY
     Route: 055
     Dates: start: 20180221, end: 20180323
  7. FOSTAIR [Concomitant]
     Active Substance: BECLOMETHASONE\FORMOTEROL
     Dosage: 4 DF (PUFFS) ONCE DAILY
     Route: 055
     Dates: start: 20160517
  8. LEVOFLOXACIN. [Suspect]
     Active Substance: LEVOFLOXACIN
     Dosage: UNK
     Dates: start: 20180426
  9. COCODAMOL [Concomitant]
     Active Substance: ACETAMINOPHEN\CODEINE PHOSPHATE
     Dosage: 1 OR 2 4 TIMES/DAY
     Dates: start: 20140807
  10. FENBID [Concomitant]
     Active Substance: IBUPROFEN
     Dosage: 1 DF APPLIED UP TO 4 TIMES A DAY AS NEEDED
     Dates: start: 20171221
  11. ESTRIOL [Concomitant]
     Active Substance: ESTRIOL
     Dosage: 1 DF ONCE DAILY APPLIED AT NIGHT
     Dates: start: 20170503
  12. LANSOPRAZOLE. [Concomitant]
     Active Substance: LANSOPRAZOLE
     Dosage: 1 DF, 1X/DAY
     Dates: start: 20101215
  13. HYDROCORTISONE. [Concomitant]
     Active Substance: HYDROCORTISONE
     Dosage: 2 DF ONCE DAILY (APPLIED)
     Dates: start: 20080429
  14. CETRABEN /01007601/ [Concomitant]
     Dosage: USE AS A SOAP SUBSTITUTE
     Dates: start: 20150428
  15. CETIRIZINE [Concomitant]
     Active Substance: CETIRIZINE HYDROCHLORIDE
     Dosage: 1 DF, 1X/DAY
     Dates: start: 20130128, end: 20180515
  16. SALBUTAMOL [Concomitant]
     Active Substance: ALBUTEROL
     Dosage: 1-2 PUFFS UP TO FOUR TIMES A DAY.
     Route: 055
     Dates: start: 20120917
  17. CODEINE PHOSPHATE [Concomitant]
     Active Substance: CODEINE PHOSPHATE
     Dosage: 4 DF, 1X/DAY
     Dates: start: 20180302, end: 20180309
  18. ASACOL [Concomitant]
     Active Substance: MESALAMINE
     Dosage: 1-2 THREE TIMES A DAY AS DIRECTED BY HOSPITAL (AS NEEDED)
     Dates: start: 20120619

REACTIONS (5)
  - Neck pain [Unknown]
  - Blister [Recovered/Resolved]
  - Musculoskeletal pain [Unknown]
  - Haematochezia [Recovered/Resolved]
  - Memory impairment [Unknown]

NARRATIVE: CASE EVENT DATE: 20180426
